FAERS Safety Report 5200060-4 (Version None)
Quarter: 2007Q1

REPORT INFORMATION
  Report Type: 
  Country: None (occurrence: None)
  Receive Date: 20070105
  Receipt Date: 20061226
  Transmission Date: 20070707
  Serious: Yes (Hospitalization)
  Sender: FDA-Public Use
  Company Number: JP-ELI_LILLY_AND_COMPANY-JP200610002199

PATIENT
  Age: 65 Year
  Sex: Male
  Weight: 55 kg

DRUGS (11)
  1. GEMZAR [Suspect]
     Indication: PANCREATIC CARCINOMA
     Dosage: 1500 MG, OTHER
     Route: 042
     Dates: start: 20060125, end: 20060920
  2. RUEFRIEN [Concomitant]
     Dosage: 0.5 G, 3/D
     Route: 048
     Dates: start: 20060201
  3. LANSOPRAZOLE [Concomitant]
     Dosage: 15 MG, DAILY (1/D)
     Route: 048
     Dates: start: 20060620
  4. SENNOSIDE A [Concomitant]
     Dosage: 24 MG, DAILY (1/D)
     Route: 048
     Dates: start: 20060201
  5. MYSLEE [Concomitant]
     Dosage: 5 MG, DAILY (1/D)
     Route: 048
     Dates: start: 20060201
  6. SOLDEM 1 [Concomitant]
  7. KYTRIL [Concomitant]
  8. PHYSISALZ [Concomitant]
  9. SOLDEM 3A [Concomitant]
  10. PRIMPERAN TAB [Concomitant]
  11. DECADRON [Concomitant]

REACTIONS (2)
  - CHOLANGITIS [None]
  - HEPATIC FUNCTION ABNORMAL [None]
